FAERS Safety Report 5789143-8 (Version None)
Quarter: 2008Q2

REPORT INFORMATION
  Report Type: 
  Country: None (occurrence: None)
  Receive Date: 20080625
  Receipt Date: 20080625
  Transmission Date: 20081010
  Serious: No
  Sender: FDA-Public Use
  Company Number: None

PATIENT
  Age: 90 Year
  Sex: Male
  Weight: 66.7 kg

DRUGS (1)
  1. FOSPHENYTOIN [Suspect]
     Dosage: 1200 MG ONCE IV
     Route: 042
     Dates: start: 20080617, end: 20080617

REACTIONS (3)
  - GRAND MAL CONVULSION [None]
  - HYPOTENSION [None]
  - MENTAL STATUS CHANGES [None]
